FAERS Safety Report 4949194-X (Version None)
Quarter: 2006Q1

REPORT INFORMATION
  Report Type: 
  Country: None (occurrence: None)
  Receive Date: 20060316
  Receipt Date: 20060303
  Transmission Date: 20060701
  Serious: Yes (Hospitalization, Other)
  Sender: FDA-Public Use
  Company Number: 2006032837

PATIENT
  Sex: 0

DRUGS (3)
  1. BEXTRA [Suspect]
     Indication: ILL-DEFINED DISORDER
  2. ALTACE [Suspect]
     Indication: ILL-DEFINED DISORDER
  3. ALL OTHER THERAPEUTIC PRODUCTS [Concomitant]

REACTIONS (11)
  - ANGINA PECTORIS [None]
  - AORTIC OCCLUSION [None]
  - ARTERIAL OCCLUSIVE DISEASE [None]
  - BLINDNESS UNILATERAL [None]
  - CEREBROVASCULAR ACCIDENT [None]
  - DRUG INEFFECTIVE [None]
  - DRUG INTERACTION [None]
  - LABORATORY TEST INTERFERENCE [None]
  - MYOCARDIAL INFARCTION [None]
  - THROMBOSIS [None]
  - TRANSIENT ISCHAEMIC ATTACK [None]
